FAERS Safety Report 9630187 (Version 2)
Quarter: 2013Q4

REPORT INFORMATION
  Report Type: Report from Study
  Country: BR (occurrence: BR)
  Receive Date: 20131017
  Receipt Date: 20131017
  Transmission Date: 20140711
  Serious: Yes (Hospitalization, Other)
  Sender: FDA-Public Use
  Company Number: BR-ABBVIE-13P-020-1116215-00

PATIENT
  Age: 29 Year
  Sex: Male
  Weight: 57.5 kg

DRUGS (4)
  1. HUMIRA [Suspect]
     Indication: CROHN^S DISEASE
     Dosage: WEEK 0
     Route: 058
     Dates: start: 20130607, end: 20130607
  2. HUMIRA [Suspect]
     Dosage: WEEK 2
     Route: 058
  3. HUMIRA [Suspect]
     Route: 058
     Dates: end: 20130618
  4. FLAGYL [Concomitant]
     Indication: CROHN^S DISEASE
     Route: 048

REACTIONS (4)
  - Anal fistula [Recovered/Resolved]
  - Postoperative wound infection [Unknown]
  - Crohn^s disease [Unknown]
  - Necrotising fasciitis [Recovered/Resolved]
